FAERS Safety Report 6982744-0 (Version None)
Quarter: 2010Q3

REPORT INFORMATION
  Report Type: 
  Country: None (occurrence: None)
  Receive Date: 20100914
  Receipt Date: 20100311
  Transmission Date: 20110219
  Serious: No
  Sender: FDA-Public Use
  Company Number: US-PFIZER INC-2010032184

PATIENT
  Sex: Female

DRUGS (1)
  1. LYRICA [Suspect]
     Dosage: 25 MG, UNK
     Route: 048
     Dates: start: 20100310

REACTIONS (3)
  - DIZZINESS [None]
  - INSOMNIA [None]
  - VITREOUS FLOATERS [None]
